FAERS Safety Report 18576199 (Version 1)
Quarter: 2020Q4

REPORT INFORMATION
  Report Type: Spontaneous
  Country: NL (occurrence: NL)
  Receive Date: 20201203
  Receipt Date: 20201203
  Transmission Date: 20210114
  Serious: Yes (Disabling)
  Sender: FDA-Public Use
  Company Number: NL-MYLANLABS-2020M1098438

PATIENT
  Age: 20 Year
  Sex: Female
  Weight: 49 kg

DRUGS (1)
  1. SERTRALINE [Suspect]
     Active Substance: SERTRALINE HYDROCHLORIDE
     Indication: DEPRESSION
     Dosage: 50 MILLIGRAM, QD
     Dates: start: 20180122

REACTIONS (6)
  - Hyperhidrosis [Unknown]
  - Emotional disorder [Recovering/Resolving]
  - Sexual dysfunction [Not Recovered/Not Resolved]
  - Genital hypoaesthesia [Unknown]
  - Confusional state [Unknown]
  - Tremor [Unknown]

NARRATIVE: CASE EVENT DATE: 20200122
